FAERS Safety Report 9029348 (Version 2)
Quarter: 2013Q1

REPORT INFORMATION
  Report Type: Spontaneous
  Country: BR (occurrence: BR)
  Receive Date: 20130125
  Receipt Date: 20130211
  Transmission Date: 20140127
  Serious: Yes (Other)
  Sender: FDA-Public Use
  Company Number: BR-JNJFOC-20130110110

PATIENT
  Age: 19 Year
  Sex: Female

DRUGS (2)
  1. REMICADE [Suspect]
     Indication: COLITIS ULCERATIVE
     Route: 042
     Dates: start: 20130104, end: 20130104
  2. REMICADE [Suspect]
     Indication: CROHN^S DISEASE
     Route: 042
     Dates: start: 20130104, end: 20130104

REACTIONS (6)
  - Throat tightness [Recovered/Resolved]
  - Infusion related reaction [Recovered/Resolved]
  - Pruritus generalised [Recovered/Resolved]
  - Papule [Recovered/Resolved]
  - Blood pressure fluctuation [Recovered/Resolved]
  - Rhinitis [Recovered/Resolved]
